FAERS Safety Report 6232268-3 (Version None)
Quarter: 2009Q2

REPORT INFORMATION
  Report Type: 
  Country: None (occurrence: None)
  Receive Date: 20090617
  Receipt Date: 20090605
  Transmission Date: 20091009
  Serious: No
  Sender: FDA-Public Use
  Company Number: GB-EISAI INC.-E2090-00728-SPO-GB

PATIENT
  Age: 37 Year
  Sex: Female

DRUGS (4)
  1. ZONEGRAN [Suspect]
     Indication: DRUG USE FOR UNKNOWN INDICATION
     Route: 048
     Dates: start: 20090508, end: 20090101
  2. ZONEGRAN [Suspect]
     Route: 048
     Dates: start: 20090101
  3. TEGRETOL [Suspect]
     Indication: DRUG USE FOR UNKNOWN INDICATION
     Dosage: 2220MG
     Route: 048
     Dates: end: 20090101
  4. TEGRETOL [Suspect]
     Dosage: REDUCED TO 1000MG (200MG)
     Route: 048
     Dates: start: 20090101

REACTIONS (3)
  - DRUG INTERACTION [None]
  - NAUSEA [None]
  - VOMITING [None]
